FAERS Safety Report 22936755 (Version 3)
Quarter: 2023Q4

REPORT INFORMATION
  Report Type: Report from Study
  Country: US (occurrence: US)
  Receive Date: 20230912
  Receipt Date: 20231227
  Transmission Date: 20240109
  Serious: Yes (Hospitalization)
  Sender: FDA-Public Use
  Company Number: US-XERIS PHARMACEUTICALS-2023XER02122

PATIENT
  Sex: Male

DRUGS (5)
  1. KEVEYIS [Suspect]
     Active Substance: DICHLORPHENAMIDE
     Indication: Paralysis
     Dosage: 50 MG (1 TABLET), 2X/DAY
     Route: 048
     Dates: start: 20230805, end: 2023
  2. KEVEYIS [Suspect]
     Active Substance: DICHLORPHENAMIDE
     Dosage: 100 MG (2 TABLET), 2X/DAY
     Route: 048
     Dates: start: 2023
  3. KEVEYIS [Suspect]
     Active Substance: DICHLORPHENAMIDE
     Dosage: 1 TABLET (50 MG), 1X/DAY IN THE MORNING
     Route: 048
     Dates: start: 2023
  4. KEVEYIS [Suspect]
     Active Substance: DICHLORPHENAMIDE
     Dosage: 2 TABLETS (100 MG), 1X/DAY IN THE EVENING
     Route: 048
     Dates: start: 2023
  5. KEVEYIS [Suspect]
     Active Substance: DICHLORPHENAMIDE
     Dosage: 2 TABLETS (100 MG), 2X/DAY
     Route: 048
     Dates: start: 2023

REACTIONS (7)
  - Heart rate decreased [Not Recovered/Not Resolved]
  - Blood potassium decreased [Recovered/Resolved]
  - Biopsy muscle [Unknown]
  - Muscular weakness [Unknown]
  - Treatment noncompliance [Unknown]
  - Burning sensation [Unknown]
  - Paraesthesia [Unknown]

NARRATIVE: CASE EVENT DATE: 20230101
